FAERS Safety Report 8881889 (Version 1)
Quarter: 2012Q4

REPORT INFORMATION
  Report Type: 
  Country: US (occurrence: US)
  Receive Date: 20121102
  Receipt Date: 20121102
  Transmission Date: 20130627
  Serious: Yes (Other)
  Sender: FDA-Public Use
  Company Number: CHPA2009US23180

PATIENT
  Age: 98 Year
  Sex: Female

DRUGS (1)
  1. MYOFLEX ANALGESIC CREME [Suspect]
     Indication: ARTHRALGIA
     Dosage: UNK, UP TO TWICE DAILY
     Route: 061

REACTIONS (2)
  - Drug dependence [Unknown]
  - Intentional drug misuse [Unknown]
